FAERS Safety Report 16001377 (Version 1)
Quarter: 2019Q1

REPORT INFORMATION
  Report Type: Spontaneous
  Country: US (occurrence: US)
  Receive Date: 20190224
  Receipt Date: 20190224
  Transmission Date: 20190418
  Serious: Yes (Life-Threatening)
  Sender: FDA-Public Use
  Company Number: None

PATIENT
  Age: 62 Year
  Sex: Male

DRUGS (1)
  1. PROVENTIL HFA [Suspect]
     Active Substance: ALBUTEROL SULFATE
     Indication: ASTHMA PROPHYLAXIS
     Route: 055

REACTIONS (3)
  - Obstructive airways disorder [None]
  - Wrong technique in device usage process [None]
  - Product design issue [None]

NARRATIVE: CASE EVENT DATE: 20190222
